FAERS Safety Report 6675503-X (Version None)
Quarter: 2010Q2

REPORT INFORMATION
  Report Type: 
  Country: None (occurrence: None)
  Receive Date: 20100409
  Receipt Date: 20100401
  Transmission Date: 20101027
  Serious: Yes (Hospitalization)
  Sender: FDA-Public Use
  Company Number: B0646142A

PATIENT
  Age: 49 Year
  Sex: Male

DRUGS (3)
  1. TRANYLCYPROMINE SULFATE [Suspect]
     Indication: BIPOLAR DISORDER
  2. LITHIUM [Suspect]
     Indication: BIPOLAR DISORDER
     Route: 065
  3. PHENELZINE [Suspect]
     Indication: BIPOLAR DISORDER
     Route: 065

REACTIONS (14)
  - AGGRESSION [None]
  - AGITATION [None]
  - CLONUS [None]
  - CONFUSIONAL STATE [None]
  - DELUSION [None]
  - DRUG INTERACTION [None]
  - HYPERREFLEXIA [None]
  - MUSCLE RIGIDITY [None]
  - PYREXIA [None]
  - RESPIRATORY DISORDER [None]
  - SEROTONIN SYNDROME [None]
  - SOMNOLENCE [None]
  - TACHYCARDIA [None]
  - TREMOR [None]
